FAERS Safety Report 4302112-X (Version None)
Quarter: 2004Q1

REPORT INFORMATION
  Report Type: 
  Country: None (occurrence: None)
  Receive Date: 20040126
  Receipt Date: 20031014
  Transmission Date: 20041129
  Serious: No
  Sender: FDA-Public Use
  Company Number: US_031098291

PATIENT
  Age: 11 Year
  Sex: Male
  Weight: 43 kg

DRUGS (1)
  1. STRATTERA [Suspect]
     Dosage: 50 MG/DAY

REACTIONS (3)
  - ANGER [None]
  - CRYING [None]
  - IRRITABILITY [None]
